FAERS Safety Report 4367191-2 (Version None)
Quarter: 2004Q2

REPORT INFORMATION
  Report Type: 
  Country: None (occurrence: None)
  Receive Date: 20040528
  Receipt Date: 20040503
  Transmission Date: 20050107
  Serious: Yes (Hospitalization)
  Sender: FDA-Public Use
  Company Number: PHNR2004AU00950

PATIENT
  Sex: Female

DRUGS (2)
  1. AREDIA [Suspect]
     Indication: BREAST CANCER METASTATIC
     Dosage: 90 MG, UNK
     Dates: start: 19990727, end: 20040408
  2. FEMARA [Concomitant]

REACTIONS (2)
  - IMPAIRED HEALING [None]
  - TOOTH ABSCESS [None]
